FAERS Safety Report 16165796 (Version 3)
Quarter: 2019Q2

REPORT INFORMATION
  Report Type: Report from Study
  Country: None (occurrence: CO)
  Receive Date: 20190406
  Receipt Date: 20190517
  Transmission Date: 20190711
  Serious: Yes (Other)
  Sender: FDA-Public Use
  Company Number: CO-ABBVIE-19K-036-2733459-00

PATIENT
  Sex: Female
  Weight: 63 kg

DRUGS (1)
  1. HUMIRA [Suspect]
     Active Substance: ADALIMUMAB
     Indication: ANKYLOSING SPONDYLITIS
     Route: 058
     Dates: start: 20161011, end: 20180801

REACTIONS (16)
  - Underdose [Recovering/Resolving]
  - Drug ineffective [Unknown]
  - Device issue [Unknown]
  - Helicobacter gastritis [Recovered/Resolved]
  - Influenza [Unknown]
  - Lacrimation increased [Unknown]
  - Rhinorrhoea [Recovering/Resolving]
  - Colitis [Recovering/Resolving]
  - Lacrimation increased [Recovered/Resolved]
  - Drug hypersensitivity [Recovering/Resolving]
  - Abdominal pain upper [Recovering/Resolving]
  - Cyst [Recovering/Resolving]
  - Inflammation [Unknown]
  - Eye swelling [Unknown]
  - Gastric cyst [Recovering/Resolving]
  - Diarrhoea [Recovering/Resolving]

NARRATIVE: CASE EVENT DATE: 2016
